FAERS Safety Report 9336219 (Version 2)
Quarter: 2013Q3

REPORT INFORMATION
  Report Type: Spontaneous
  Country: IT (occurrence: IT)
  Receive Date: 20130607
  Receipt Date: 20130801
  Transmission Date: 20140515
  Serious: Yes (Hospitalization)
  Sender: FDA-Public Use
  Company Number: IT-ABBOTT-13X-083-1100355-00

PATIENT
  Age: 30 Year
  Sex: Male

DRUGS (3)
  1. DEPAKIN CHRONO [Suspect]
     Indication: DRUG ABUSE
     Dosage: 2000 MILLIGRAM(S); TOTAL, EXTENDED RELEASE
     Route: 048
     Dates: start: 20130426, end: 20130426
  2. CLOZAPINE [Suspect]
     Indication: DRUG ABUSE
     Route: 048
     Dates: start: 20130426, end: 20130426
  3. RIVOTRIL [Suspect]
     Indication: DRUG ABUSE
     Route: 048
     Dates: start: 20130426, end: 20130426

REACTIONS (3)
  - Toxicity to various agents [Not Recovered/Not Resolved]
  - Vomiting [Not Recovered/Not Resolved]
  - Sopor [Not Recovered/Not Resolved]
